FAERS Safety Report 4977478-8 (Version None)
Quarter: 2006Q2

REPORT INFORMATION
  Report Type: 
  Country: None (occurrence: None)
  Receive Date: 20060420
  Receipt Date: 20060317
  Transmission Date: 20061013
  Serious: Yes (Other)
  Sender: FDA-Public Use
  Company Number: 2006UW04681

PATIENT
  Age: 58 Year
  Sex: Female
  Weight: 106.8 kg

DRUGS (15)
  1. CRESTOR [Suspect]
     Indication: BLOOD CHOLESTEROL INCREASED
     Route: 048
     Dates: start: 20050318, end: 20060301
  2. PAXIL [Concomitant]
     Indication: DEPRESSION
     Route: 048
     Dates: start: 20020403
  3. GLYBURIDE [Concomitant]
  4. PRINIVIL [Concomitant]
     Indication: HYPERTENSION
     Route: 048
     Dates: start: 20050721
  5. CAPTOPRIL [Concomitant]
  6. VICODIN [Concomitant]
     Indication: LUMBAR SPINAL STENOSIS
     Route: 048
     Dates: start: 20021007
  7. AMBIEN CR [Concomitant]
     Indication: INSOMNIA
     Route: 048
     Dates: start: 20021007
  8. FISH OIL [Concomitant]
  9. GLUCOSAMINE [Concomitant]
  10. CALCIUM GLUCONATE [Concomitant]
  11. MULTIVITAMIN [Concomitant]
  12. SYNTHROID [Concomitant]
     Indication: HYPOTHYROIDISM
     Route: 048
     Dates: start: 20060119
  13. GLUCOPHAGE [Concomitant]
     Indication: DIABETES MELLITUS
     Route: 048
     Dates: start: 20040728
  14. VITAMIN D [Concomitant]
     Dates: start: 20060119
  15. UNSPECIFIED [Concomitant]
     Dates: start: 20020403

REACTIONS (15)
  - ANGER [None]
  - ANXIETY [None]
  - BALANCE DISORDER [None]
  - BODY TEMPERATURE FLUCTUATION [None]
  - DEPRESSION [None]
  - HEADACHE [None]
  - HOT FLUSH [None]
  - HYPOGLYCAEMIA [None]
  - HYPOTENSION [None]
  - HYPOTHYROIDISM [None]
  - LOSS OF CONSCIOUSNESS [None]
  - LOW DENSITY LIPOPROTEIN DECREASED [None]
  - SUICIDAL IDEATION [None]
  - SYNCOPE [None]
  - WEIGHT INCREASED [None]
